FAERS Safety Report 15993184 (Version 1)
Quarter: 2019Q1

REPORT INFORMATION
  Report Type: Spontaneous
  Country: FR (occurrence: FR)
  Receive Date: 20190222
  Receipt Date: 20190222
  Transmission Date: 20190418
  Serious: Yes (Other)
  Sender: FDA-Public Use
  Company Number: FR-BRISTOL-MYERS SQUIBB COMPANY-BMS-2019-016267

PATIENT
  Age: 73 Year
  Sex: Male
  Weight: 80 kg

DRUGS (1)
  1. OPDIVO [Suspect]
     Active Substance: NIVOLUMAB
     Indication: BRONCHIAL CARCINOMA
     Dosage: 3 MG/KG, 15 DAY
     Route: 042
     Dates: start: 20170301, end: 20180124

REACTIONS (2)
  - Arthralgia [Recovering/Resolving]
  - Rheumatic disorder [Recovering/Resolving]

NARRATIVE: CASE EVENT DATE: 20171123
